FAERS Safety Report 5984396-5 (Version None)
Quarter: 2008Q4

REPORT INFORMATION
  Report Type: 
  Country: None (occurrence: None)
  Receive Date: 20081208
  Receipt Date: 20081202
  Transmission Date: 20090506
  Serious: Yes (Death, Hospitalization)
  Sender: FDA-Public Use
  Company Number: CA-CELGENEUS-028-C5013-08101307

PATIENT
  Sex: Male
  Weight: 68.9 kg

DRUGS (3)
  1. REVLIMID [Suspect]
     Indication: MULTIPLE MYELOMA
     Route: 048
     Dates: start: 20060127, end: 20081005
  2. REVLIMID [Suspect]
     Route: 048
     Dates: start: 20081016, end: 20081028
  3. DEXAMETHASONE [Suspect]
     Indication: MULTIPLE MYELOMA
     Route: 048
     Dates: start: 20060127

REACTIONS (2)
  - PNEUMONIA [None]
  - RESPIRATORY FAILURE [None]
